FAERS Safety Report 6317007-X (Version None)
Quarter: 2009Q3

REPORT INFORMATION
  Report Type: 
  Country: None (occurrence: None)
  Receive Date: 20090820
  Receipt Date: 20090813
  Transmission Date: 20100115
  Serious: Yes (Hospitalization)
  Sender: FDA-Public Use
  Company Number: FR-PFIZER INC-2009254153

PATIENT
  Age: 83 Year

DRUGS (11)
  1. TAHOR [Suspect]
     Dosage: 40 MG, 1X/DAY
     Route: 048
  2. PREVISCAN [Interacting]
     Indication: ARRHYTHMIA
     Dosage: 20 MG, 1X/DAY
     Dates: start: 20090101, end: 20090124
  3. PREVISCAN [Interacting]
     Indication: ATRIAL FIBRILLATION
  4. KARDEGIC [Interacting]
     Dosage: 160 MG, 1X/DAY
     Route: 048
  5. CORDARONE [Interacting]
     Dosage: 1 DF, 1X/DAY (EXCEPT ON WEEKEND)
     Route: 048
  6. LEVOTHYROXINE SODIUM [Interacting]
     Dosage: 135 UG, 1X/DAY
     Route: 048
  7. EZETROL [Concomitant]
     Dosage: 10 MG, 1X/DAY
     Route: 048
  8. LANSOPRAZOLE [Concomitant]
     Dosage: 15 MG, 1X/DAY
     Route: 048
  9. IKOREL [Concomitant]
     Dosage: 5 MG, 1X/DAY
  10. SELOKEN [Concomitant]
     Dosage: 100 MG, 3X/DAY
     Route: 048
  11. TRINITRINE [Concomitant]
     Route: 062

REACTIONS (3)
  - DRUG INTERACTION [None]
  - HAEMOPTYSIS [None]
  - INTERNATIONAL NORMALISED RATIO INCREASED [None]
